FAERS Safety Report 7389079-5 (Version None)
Quarter: 2011Q2

REPORT INFORMATION
  Report Type: 
  Country: None (occurrence: None)
  Receive Date: 20110401
  Receipt Date: 20110325
  Transmission Date: 20111010
  Serious: Yes (Death, Life-Threatening, Other)
  Sender: FDA-Public Use
  Company Number: JP-ROCHE-749138

PATIENT
  Sex: Male
  Weight: 64 kg

DRUGS (14)
  1. AVASTIN [Suspect]
     Indication: COLON CANCER METASTATIC
     Route: 041
     Dates: start: 20101025, end: 20110113
  2. FLUOROURACIL [Concomitant]
     Dosage: FORM: INTRAVENOUS BOLUS.
     Route: 042
     Dates: start: 20101025, end: 20101025
  3. LEVOFOLINATE [Concomitant]
     Dosage: FORM: INTRAVENOUS DRIP
     Route: 041
     Dates: start: 20110113, end: 20110113
  4. GRANISETRON HCL [Concomitant]
     Route: 041
  5. FAMOSTAGINE [Concomitant]
     Route: 041
     Dates: start: 20101028, end: 20101030
  6. FUNGUARD [Concomitant]
     Route: 041
     Dates: start: 20101211, end: 20101213
  7. MEROPEN [Concomitant]
     Route: 041
     Dates: start: 20101201, end: 20101206
  8. TOPOTECAN [Suspect]
     Route: 041
     Dates: start: 20101115, end: 20101115
  9. LEVOFOLINATE [Concomitant]
     Route: 041
     Dates: start: 20101025, end: 20101025
  10. MINOCYCLINE [Concomitant]
     Route: 041
     Dates: start: 20101207, end: 20101213
  11. LEVOFOLINATE [Concomitant]
     Dosage: FORM: INTRAVENOUS DRIP
     Route: 041
     Dates: start: 20101115, end: 20101115
  12. GRAN [Suspect]
     Indication: COLON CANCER METASTATIC
     Route: 058
     Dates: start: 20101126, end: 20101128
  13. TOPOTECAN [Suspect]
     Indication: COLON CANCER METASTATIC
     Route: 041
     Dates: start: 20101025, end: 20101025
  14. DEXART [Concomitant]
     Route: 041

REACTIONS (7)
  - FEBRILE NEUTROPENIA [None]
  - HYPERGLYCAEMIA [None]
  - DEVICE RELATED INFECTION [None]
  - DEPRESSED LEVEL OF CONSCIOUSNESS [None]
  - INTERSTITIAL LUNG DISEASE [None]
  - SEPTIC SHOCK [None]
  - STAPHYLOCOCCAL INFECTION [None]
